FAERS Safety Report 7502555-7 (Version None)
Quarter: 2011Q2

REPORT INFORMATION
  Report Type: 
  Country: None (occurrence: None)
  Receive Date: 20110517
  Receipt Date: 20110512
  Transmission Date: 20111010
  Serious: Yes (Death, Hospitalization)
  Sender: FDA-Public Use
  Company Number: SP03685

PATIENT
  Age: 65 Year
  Sex: Male

DRUGS (1)
  1. XIFAXAN [Suspect]
     Indication: HEPATIC ENCEPHALOPATHY
     Dosage: ORAL
     Route: 048

REACTIONS (3)
  - RENAL FAILURE [None]
  - HEPATIC FAILURE [None]
  - ASPIRATION [None]
